FAERS Safety Report 4407156-5 (Version None)
Quarter: 2004Q3

REPORT INFORMATION
  Report Type: 
  Country: None (occurrence: None)
  Receive Date: 20040723
  Receipt Date: 20040723
  Transmission Date: 20050211
  Serious: Yes (Other)
  Sender: FDA-Public Use
  Company Number: None

PATIENT
  Age: 77 Year
  Sex: Male
  Weight: 115.7 kg

DRUGS (18)
  1. TERAZOSIN HCL [Suspect]
  2. SULFAMETHOXAZOLE + TRIMETHOPRIM [Concomitant]
  3. IPATROPIUM BROMIDE [Concomitant]
  4. ALBUTEROL [Concomitant]
  5. FLUNISOLIDE [Concomitant]
  6. FORMOTEROL FUMARATE [Concomitant]
  7. LATANOPROST [Concomitant]
  8. DORZOLAMIDE HCL [Concomitant]
  9. FOSINOPRIL NA [Concomitant]
  10. LORATADINE [Concomitant]
  11. ROSGLITAZONE MALEATE [Concomitant]
  12. FUROSEMIDE [Concomitant]
  13. BETAXOLOL [Concomitant]
  14. GLYBURIDE [Concomitant]
  15. NITROGLYCERIN [Concomitant]
  16. METFORMIN HCL [Concomitant]
  17. ALBUTEROL/IPRATROP [Concomitant]
  18. TRIAMCINOLONE [Concomitant]

REACTIONS (1)
  - HEADACHE [None]
